FAERS Safety Report 7372372-X (Version None)
Quarter: 2011Q1

REPORT INFORMATION
  Report Type: 
  Country: None (occurrence: None)
  Receive Date: 20110324
  Receipt Date: 20110316
  Transmission Date: 20110831
  Serious: Yes (Hospitalization)
  Sender: FDA-Public Use
  Company Number: JP-BAYER-201012136BYL

PATIENT
  Sex: Male
  Weight: 52 kg

DRUGS (13)
  1. FALKAMIN [Concomitant]
     Route: 048
  2. URSO 250 [Concomitant]
     Dosage: UNK
     Route: 048
  3. NEXAVAR [Suspect]
     Dosage: 200 MG, QD
     Route: 048
     Dates: start: 20100413, end: 20100515
  4. LACTULOSE [Concomitant]
     Indication: HYPERAMMONAEMIA
     Dosage: UNK
     Route: 048
     Dates: start: 20100215
  5. PARIET [Concomitant]
     Dosage: UNK
     Route: 048
  6. NEXAVAR [Suspect]
     Dosage: 400 MG, QD
     Route: 048
     Dates: start: 20100202, end: 20100205
  7. NEXAVAR [Suspect]
     Dosage: 200 MG, QD
     Route: 048
     Dates: start: 20100210
  8. LANTUS [Concomitant]
     Dosage: UNK
     Route: 058
  9. AMLODIPINE [Concomitant]
     Indication: HYPERTENSION
     Dosage: UNK
     Route: 048
     Dates: start: 20100205
  10. DIOVAN [Concomitant]
     Indication: HYPERTENSION
     Dosage: UNK
     Route: 048
     Dates: start: 20100222
  11. URSO 250 [Concomitant]
  12. NEXAVAR [Suspect]
     Indication: HEPATIC NEOPLASM MALIGNANT
     Dosage: 800 MG, QD
     Dates: start: 20100128, end: 20100129
  13. NEXAVAR [Suspect]
     Dosage: 400 MG, QD
     Route: 048
     Dates: start: 20100309, end: 20100316

REACTIONS (3)
  - OEDEMA [None]
  - HEPATIC ENCEPHALOPATHY [None]
  - PYREXIA [None]
